FAERS Safety Report 24832294 (Version 5)
Quarter: 2025Q1

REPORT INFORMATION
  Report Type: Report from Study
  Country: AR (occurrence: AR)
  Receive Date: 20250110
  Receipt Date: 20250322
  Transmission Date: 20250409
  Serious: Yes (Hospitalization)
  Sender: AMGEN
  Company Number: AR-AMGEN-ARGSL2024237464

PATIENT
  Age: 77 Year
  Sex: Female

DRUGS (5)
  1. VECTIBIX [Suspect]
     Active Substance: PANITUMUMAB
     Indication: Colorectal cancer
     Route: 065
     Dates: start: 20241114
  2. VECTIBIX [Suspect]
     Active Substance: PANITUMUMAB
     Route: 065
     Dates: start: 2024
  3. VECTIBIX [Suspect]
     Active Substance: PANITUMUMAB
     Route: 065
  4. VECTIBIX [Suspect]
     Active Substance: PANITUMUMAB
     Route: 065
  5. VECTIBIX [Suspect]
     Active Substance: PANITUMUMAB
     Route: 065
     Dates: end: 2025

REACTIONS (10)
  - White blood cell count decreased [Not Recovered/Not Resolved]
  - Skin burning sensation [Unknown]
  - Illness [Unknown]
  - Dehydration [Unknown]
  - Diarrhoea [Unknown]
  - Alopecia [Not Recovered/Not Resolved]
  - Blood potassium decreased [Unknown]
  - Electric shock sensation [Unknown]
  - Ill-defined disorder [Unknown]
  - Weight decreased [Unknown]

NARRATIVE: CASE EVENT DATE: 20240101
